FAERS Safety Report 26093112 (Version 1)
Quarter: 2025Q4

REPORT INFORMATION
  Report Type: Spontaneous
  Country: CH (occurrence: CH)
  Receive Date: 20251126
  Receipt Date: 20251126
  Transmission Date: 20260118
  Serious: Yes (Other)
  Sender: AMGEN
  Company Number: CH-AMGEN-CHESP2025231333

PATIENT
  Age: 84 Year
  Sex: Male

DRUGS (1)
  1. PROLIA [Suspect]
     Active Substance: DENOSUMAB
     Indication: Osteoporosis
     Dosage: 60 MILLIGRAM
     Route: 065
     Dates: start: 202509, end: 202509

REACTIONS (1)
  - Spinal fracture [Unknown]
